FAERS Safety Report 4708608-0 (Version None)
Quarter: 2005Q3

REPORT INFORMATION
  Report Type: 
  Country: None (occurrence: None)
  Receive Date: 20050706
  Receipt Date: 20050630
  Transmission Date: 20060218
  Serious: Yes (Disabling)
  Sender: FDA-Public Use
  Company Number: GBWYE732310JUN05

PATIENT
  Age: 38 Year
  Sex: Male

DRUGS (2)
  1. EFFEXOR [Suspect]
     Dosage: 225 MG 1X PER 1 DAY; ORAL
     Route: 048
     Dates: start: 19990101
  2. UNSPECIFIED PAIN MEDICATION [Concomitant]

REACTIONS (2)
  - ARTHRALGIA [None]
  - POST VIRAL FATIGUE SYNDROME [None]
